FAERS Safety Report 5599748-5 (Version None)
Quarter: 2008Q1

REPORT INFORMATION
  Report Type: 
  Country: None (occurrence: None)
  Receive Date: 20080123
  Receipt Date: 20080116
  Transmission Date: 20080703
  Serious: Yes (Congenital Anomaly, Other)
  Sender: FDA-Public Use
  Company Number: FR-BRISTOL-MYERS SQUIBB COMPANY-14044457

PATIENT
  Sex: Female
  Weight: 1 kg

DRUGS (5)
  1. SUSTIVA [Suspect]
     Route: 064
     Dates: start: 20070328, end: 20070808
  2. TRUVADA [Suspect]
     Route: 064
     Dates: start: 20070328, end: 20070808
  3. COMBIVIR [Suspect]
     Route: 064
  4. KALETRA [Suspect]
     Route: 064
     Dates: start: 20070808
  5. DEPAMIDE [Suspect]
     Indication: BIPOLAR DISORDER
     Route: 064
     Dates: start: 20061001, end: 20070804

REACTIONS (2)
  - RESPIRATORY DISTRESS [None]
  - TALIPES [None]
